FAERS Safety Report 10265608 (Version 1)
Quarter: 2014Q2

REPORT INFORMATION
  Report Type: Spontaneous
  Country: US (occurrence: None)
  Receive Date: 20140625
  Receipt Date: 20140625
  Transmission Date: 20141212
  Serious: Yes (Other)
  Sender: FDA-Public Use
  Company Number: None

PATIENT
  Age: 41 Year
  Sex: Female
  Weight: 70.31 kg

DRUGS (1)
  1. GAMMAGARD [Suspect]
     Indication: IMMUNE TOLERANCE INDUCTION
     Dosage: 70GM X 2 DAYS MONTHLY, Q2 WEEKS
     Route: 042
     Dates: start: 20140618, end: 20140620

REACTIONS (2)
  - Contusion [None]
  - Pruritus [None]
